FAERS Safety Report 6610360-9 (Version None)
Quarter: 2010Q1

REPORT INFORMATION
  Report Type: 
  Country: None (occurrence: None)
  Receive Date: 20100302
  Receipt Date: 20100209
  Transmission Date: 20100710
  Serious: Yes (Other)
  Sender: FDA-Public Use
  Company Number: FR-BAYER-200917034GPV

PATIENT
  Age: 59 Year
  Sex: Female

DRUGS (1)
  1. MAGNEVIST [Suspect]
     Indication: NUCLEAR MAGNETIC RESONANCE IMAGING ABDOMINAL
     Dosage: TOTAL DAILY DOSE: 16 ML
     Route: 042
     Dates: start: 20090313, end: 20090313

REACTIONS (10)
  - C-REACTIVE PROTEIN INCREASED [None]
  - FATIGUE [None]
  - INCORRECT ROUTE OF DRUG ADMINISTRATION [None]
  - INFLAMMATION [None]
  - LYMPHADENITIS [None]
  - LYMPHADENOPATHY [None]
  - NAUSEA [None]
  - OEDEMA PERIPHERAL [None]
  - PAIN IN EXTREMITY [None]
  - RED BLOOD CELL SEDIMENTATION RATE INCREASED [None]
